FAERS Safety Report 12146091 (Version 1)
Quarter: 2016Q1

REPORT INFORMATION
  Report Type: Spontaneous
  Country: US (occurrence: US)
  Receive Date: 20160304
  Receipt Date: 20160304
  Transmission Date: 20160526
  Serious: No
  Sender: FDA-Public Use
  Company Number: US-PERRIGO-15US007631

PATIENT
  Age: 32 Year
  Sex: Female
  Weight: 78.5 kg

DRUGS (3)
  1. NAPROXEN SODIUM 220 MG 368 [Suspect]
     Active Substance: NAPROXEN SODIUM
     Indication: HEADACHE
     Dosage: 220 MG TO 440 MG, QD TO BID, PRN
     Route: 048
     Dates: start: 2014, end: 20150718
  2. NAPROXEN SODIUM 220 MG 368 [Suspect]
     Active Substance: NAPROXEN SODIUM
     Indication: MUSCLE SPASMS
     Dosage: 220 MG TO 440 MG, SINGLE
     Route: 048
     Dates: start: 20150719, end: 20150719
  3. SEASONIQUE [Concomitant]
     Active Substance: ETHINYL ESTRADIOL\LEVONORGESTREL
     Indication: CONTRACEPTION
     Dosage: UNK
     Route: 048
     Dates: start: 20150421

REACTIONS (4)
  - Nausea [Recovered/Resolved]
  - Incorrect dose administered [Recovered/Resolved]
  - Dehydration [Recovered/Resolved]
  - Vomiting [Recovered/Resolved]

NARRATIVE: CASE EVENT DATE: 2014
